FAERS Safety Report 20730161 (Version 5)
Quarter: 2022Q2

REPORT INFORMATION
  Report Type: Spontaneous
  Country: AR (occurrence: AR)
  Receive Date: 20220420
  Receipt Date: 20220510
  Transmission Date: 20220720
  Serious: Yes (Other)
  Sender: FDA-Public Use
  Company Number: AR-PFIZER INC-202200558838

PATIENT
  Age: 57 Year
  Sex: Female

DRUGS (1)
  1. ENBREL [Suspect]
     Active Substance: ETANERCEPT
     Indication: Psoriatic arthropathy
     Dosage: 50 MG, WEEKLY
     Dates: start: 20211124, end: 20220328

REACTIONS (9)
  - Product administration interrupted [Unknown]
  - Device failure [Unknown]
  - Device leakage [Unknown]
  - Psoriatic arthropathy [Not Recovered/Not Resolved]
  - Disturbance in attention [Unknown]
  - Anger [Unknown]
  - Emotional disorder [Unknown]
  - Product storage error [Unknown]
  - Product administration error [Unknown]

NARRATIVE: CASE EVENT DATE: 20220328
